FAERS Safety Report 8595500-7 (Version None)
Quarter: 2012Q3

REPORT INFORMATION
  Report Type: 
  Country: None (occurrence: None)
  Receive Date: 20120815
  Receipt Date: 20120806
  Transmission Date: 20120928
  Serious: No
  Sender: FDA-Public Use
  Company Number: US-ASTRAZENECA-2012SE55383

PATIENT
  Age: 20 Year
  Sex: Male

DRUGS (2)
  1. SEROQUEL [Suspect]
     Indication: SCHIZOPHRENIA
     Route: 048
  2. LATUDA [Suspect]
     Indication: PSYCHOPATHIC PERSONALITY
     Route: 065

REACTIONS (2)
  - HEART RATE IRREGULAR [None]
  - BLOOD POTASSIUM DECREASED [None]
